FAERS Safety Report 23472083 (Version 1)
Quarter: 2024Q1

REPORT INFORMATION
  Report Type: Spontaneous
  Country: US (occurrence: None)
  Receive Date: 20240202
  Receipt Date: 20240202
  Transmission Date: 20240410
  Serious: Yes (Hospitalization)
  Sender: FDA-Public Use
  Company Number: None

PATIENT
  Age: 61 Year
  Sex: Female
  Weight: 69.75 kg

DRUGS (7)
  1. EVENITY [Suspect]
     Active Substance: ROMOSOZUMAB-AQQG
     Indication: Osteoporosis
     Dosage: OTHER FREQUENCY : EVER 4 WEEKS;?OTHER ROUTE : INJECTION 2;?
     Route: 050
     Dates: start: 20231201, end: 20231229
  2. UNSPECIFIED INGREDIENT [Concomitant]
     Active Substance: UNSPECIFIED INGREDIENT
  3. hbp meds [Concomitant]
  4. soy protein powder drink [Concomitant]
  5. METAMUCIL [Concomitant]
     Active Substance: PLANTAGO SEED
  6. VITAMINS [Concomitant]
     Active Substance: VITAMINS
  7. MINERALS [Concomitant]
     Active Substance: MINERALS

REACTIONS (1)
  - Acute myocardial infarction [None]

NARRATIVE: CASE EVENT DATE: 20240116
